FAERS Safety Report 9338898 (Version 1)
Quarter: 2013Q2

REPORT INFORMATION
  Report Type: Spontaneous
  Country: US (occurrence: None)
  Receive Date: 20130606
  Receipt Date: 20130606
  Transmission Date: 20140414
  Serious: Yes (Hospitalization)
  Sender: FDA-Public Use
  Company Number: None

PATIENT
  Age: 35 Year
  Sex: Male
  Weight: 82.4 kg

DRUGS (1)
  1. DIHYDROERGOTAMINE [Suspect]
     Indication: MIGRAINE
     Route: 042
     Dates: start: 20130530, end: 20130604

REACTIONS (2)
  - Phlebitis [None]
  - Injection site extravasation [None]
